FAERS Safety Report 6628609-5 (Version None)
Quarter: 2010Q1

REPORT INFORMATION
  Report Type: 
  Country: None (occurrence: None)
  Receive Date: 20100225
  Receipt Date: 20091216
  Transmission Date: 20100710
  Serious: Yes (Hospitalization)
  Sender: FDA-Public Use
  Company Number: 674970

PATIENT
  Age: 24 Year
  Sex: Male
  Weight: 113.4 kg

DRUGS (2)
  1. ACCUTANE [Suspect]
     Indication: ACNE
     Dates: start: 19940101, end: 19950101
  2. ERYTHROMYCIN [Concomitant]

REACTIONS (5)
  - ABDOMINAL PAIN [None]
  - COLITIS [None]
  - GASTROINTESTINAL DISORDER [None]
  - HAEMATOCHEZIA [None]
  - RECTAL HAEMORRHAGE [None]
